FAERS Safety Report 5323907-X (Version None)
Quarter: 2007Q2

REPORT INFORMATION
  Report Type: 
  Country: None (occurrence: None)
  Receive Date: 20070509
  Receipt Date: 20070509
  Transmission Date: 20071010
  Serious: Yes (Life-Threatening, Hospitalization, Disabling)
  Sender: FDA-Public Use
  Company Number: None

PATIENT
  Sex: Male
  Weight: 0.795 kg

DRUGS (1)
  1. IBUPROFEN [Suspect]
     Indication: PATENT DUCTUS ARTERIOSUS
     Dosage: 8 MG X 1 DOSE IV 4 MG EVERY 24 HRS X 2 IV
     Route: 042
     Dates: start: 20060923, end: 20060925

REACTIONS (3)
  - ABDOMINAL WALL DISORDER [None]
  - ILEAL PERFORATION [None]
  - SKIN DISCOLOURATION [None]
